FAERS Safety Report 6807133-0 (Version None)
Quarter: 2010Q2

REPORT INFORMATION
  Report Type: 
  Country: None (occurrence: None)
  Receive Date: 20100628
  Receipt Date: 20100628
  Transmission Date: 20101027
  Serious: Yes (Other)
  Sender: FDA-Public Use
  Company Number: None

PATIENT
  Age: 77 Year
  Sex: Female
  Weight: 108.8633 kg

DRUGS (1)
  1. METOPROLOL TARTRATE [Suspect]
     Indication: HYPERTENSION
     Dosage: 1 TABLET TWICE PER DAY PO
     Route: 048
     Dates: start: 20100623, end: 20100624

REACTIONS (2)
  - HYPERTENSION [None]
  - PRODUCT SUBSTITUTION ISSUE [None]
